FAERS Safety Report 7410031-5 (Version None)
Quarter: 2011Q2

REPORT INFORMATION
  Report Type: 
  Country: None (occurrence: None)
  Receive Date: 20110412
  Receipt Date: 20110325
  Transmission Date: 20111010
  Serious: Yes (Other)
  Sender: FDA-Public Use
  Company Number: CHPA2011US05009

PATIENT
  Sex: Female
  Weight: 38.549 kg

DRUGS (10)
  1. NADOLOL [Concomitant]
     Indication: BLOOD PRESSURE
     Route: 048
  2. LASIX [Concomitant]
     Indication: DIURETIC THERAPY
     Route: 048
  3. ACETAMINOPHEN [Concomitant]
     Indication: PAIN IN EXTREMITY
     Dosage: 2 DF PER DAY
     Route: 048
  4. COLACE [Concomitant]
     Indication: FAECES HARD
  5. ISORDIL [Concomitant]
     Indication: CARDIAC DISORDER
     Route: 048
  6. MULTI-VITAMINS [Concomitant]
  7. ACETAMINOPHEN [Concomitant]
     Indication: ARTHRALGIA
  8. SYNTHROID [Concomitant]
     Indication: THYROID DISORDER
     Route: 048
  9. PRILOSEC [Concomitant]
     Indication: GASTROOESOPHAGEAL REFLUX DISEASE
     Route: 048
  10. VOLTAREN [Suspect]
     Indication: ARTHRALGIA
     Dosage: 2 G, TID
     Route: 061
     Dates: start: 20110125, end: 20110323

REACTIONS (4)
  - MUSCULOSKELETAL PAIN [None]
  - JOINT STIFFNESS [None]
  - OEDEMA PERIPHERAL [None]
  - PAIN [None]
